FAERS Safety Report 5932682-7 (Version None)
Quarter: 2008Q4

REPORT INFORMATION
  Report Type: 
  Country: None (occurrence: None)
  Receive Date: 20081009
  Receipt Date: 20080102
  Transmission Date: 20090506
  Serious: Yes (Other)
  Sender: FDA-Public Use
  Company Number: PHEH2007US15003

PATIENT
  Age: 48 Year
  Sex: Female

DRUGS (1)
  1. ZOMETA [Suspect]
     Indication: METASTASES TO BONE
     Dosage: 4 MG, QMO
     Dates: start: 20031103, end: 20070918

REACTIONS (13)
  - BONE DEBRIDEMENT [None]
  - BONE DISORDER [None]
  - DENTAL CARE [None]
  - EXCESSIVE GRANULATION TISSUE [None]
  - GINGIVAL ERYTHEMA [None]
  - GINGIVAL SWELLING [None]
  - IMPAIRED HEALING [None]
  - ORAL PAIN [None]
  - OSTEONECROSIS [None]
  - PAIN [None]
  - PRIMARY SEQUESTRUM [None]
  - TOOTH EXTRACTION [None]
  - WOUND DRAINAGE [None]
